FAERS Safety Report 14280090 (Version 6)
Quarter: 2018Q2

REPORT INFORMATION
  Report Type: Spontaneous
  Country: IT (occurrence: IT)
  Receive Date: 20171212
  Receipt Date: 20180621
  Transmission Date: 20180711
  Serious: Yes (Other)
  Sender: FDA-Public Use
  Company Number: IT-BAUSCH-BL-2017-033185

PATIENT
  Age: 36 Year
  Sex: Female

DRUGS (5)
  1. NIMESULIDE [Suspect]
     Active Substance: NIMESULIDE
     Dosage: FROM THE 4TH MONTH TO DELIVERY
     Route: 065
  2. DICLOFENAC SODIUM. [Suspect]
     Active Substance: DICLOFENAC SODIUM
     Indication: NEURITIS
     Dosage: FROM THE 2ND TO THE 3RD MONTH
     Route: 065
  3. PARACETAMOL [Suspect]
     Active Substance: ACETAMINOPHEN
     Indication: NEURITIS
     Dosage: 8-9 G, QD
     Route: 065
  4. NIMESULIDE [Suspect]
     Active Substance: NIMESULIDE
     Indication: NEURITIS
     Dosage: 100-200 MG/DAY FROM 3 MONTHS BEFORE TO 1 MONTH AFTER CONCEPTION
     Route: 065
  5. PARACETAMOL [Suspect]
     Active Substance: ACETAMINOPHEN
     Dosage: 1-2 G/DAY FROM THE 4TH MONTH TO DELIVERY
     Route: 065

REACTIONS (3)
  - Contraindication to medical treatment [Unknown]
  - Overdose [Unknown]
  - Maternal exposure during pregnancy [Unknown]
